FAERS Safety Report 9882742 (Version 2)
Quarter: 2014Q1

REPORT INFORMATION
  Report Type: Report from Study
  Country: US (occurrence: US)
  Receive Date: 20140207
  Receipt Date: 20140207
  Transmission Date: 20141002
  Serious: No
  Sender: FDA-Public Use
  Company Number: US-BIOMARINAP-US-2013-102480

PATIENT
  Age: 8 Year
  Sex: Female
  Weight: 15 kg

DRUGS (3)
  1. NAGLAZYME [Suspect]
     Indication: MUCOPOLYSACCHARIDOSIS VI
     Dosage: 15 MG, QW
     Route: 041
     Dates: start: 20081114
  2. NAGLAZYME [Suspect]
     Dosage: 20 MG, QW
     Route: 041
  3. NAGLAZYME [Suspect]
     Dosage: 1 MG/KG, UNK
     Route: 041
     Dates: start: 20081114

REACTIONS (1)
  - Headache [Recovering/Resolving]
